FAERS Safety Report 9362733 (Version 2)
Quarter: 2013Q2

REPORT INFORMATION
  Report Type: Spontaneous
  Country: PH (occurrence: PH)
  Receive Date: 20130622
  Receipt Date: 20130628
  Transmission Date: 20140414
  Serious: Yes (Death)
  Sender: FDA-Public Use
  Company Number: PH-MERCK-1306PHL009407

PATIENT
  Age: 50 Year
  Sex: Female

DRUGS (1)
  1. JANUMET [Suspect]
     Dosage: UNK, QD
     Route: 048

REACTIONS (1)
  - Adverse event [Fatal]
